FAERS Safety Report 4995974-4 (Version None)
Quarter: 2006Q2

REPORT INFORMATION
  Report Type: 
  Country: None (occurrence: None)
  Receive Date: 20060508
  Receipt Date: 20050701
  Transmission Date: 20061013
  Serious: Yes (Hospitalization, Disabling)
  Sender: FDA-Public Use
  Company Number: US-MERCK-0507USA00478

PATIENT
  Age: 53 Year
  Sex: Male
  Weight: 118 kg

DRUGS (10)
  1. VIOXX [Suspect]
     Indication: ARTHROPATHY
     Route: 048
     Dates: start: 19990101, end: 20040901
  2. VIOXX [Suspect]
     Route: 048
  3. VIOXX [Suspect]
     Indication: BACK DISORDER
     Route: 048
     Dates: start: 19990101, end: 20040901
  4. VIOXX [Suspect]
     Route: 048
  5. ACETAMINOPHEN AND HYDROCODONE BITARTRATE [Concomitant]
     Route: 065
     Dates: start: 20010614
  6. ZOLOFT [Concomitant]
     Route: 065
     Dates: start: 20030512
  7. RANITIDINE [Concomitant]
     Route: 065
  8. ULTRACET [Concomitant]
     Route: 065
  9. NEXIUM [Concomitant]
     Route: 065
  10. TRAMADOL HYDROCHLORIDE [Concomitant]
     Route: 065

REACTIONS (7)
  - ADVERSE EVENT [None]
  - ARTHROPATHY [None]
  - CHRONIC OBSTRUCTIVE PULMONARY DISEASE [None]
  - HYPERTENSION [None]
  - INJURY [None]
  - LIP DISORDER [None]
  - TRANSIENT ISCHAEMIC ATTACK [None]
